FAERS Safety Report 13998857 (Version 2)
Quarter: 2017Q4

REPORT INFORMATION
  Report Type: Not Available
  Country: US (occurrence: US)
  Receive Date: 20170921
  Receipt Date: 20171128
  Transmission Date: 20180321
  Serious: No
  Sender: FDA-Public Use
  Company Number: US-NEUROCRINE BIOSCIENCES INC.-2017NBI00647

PATIENT
  Sex: Female
  Weight: 63.11 kg

DRUGS (25)
  1. ASPIRIN. [Concomitant]
     Active Substance: ASPIRIN
  2. ATORVASTATIN [Concomitant]
     Active Substance: ATORVASTATIN
     Indication: BLOOD CHOLESTEROL INCREASED
  3. METOPROLOL. [Concomitant]
     Active Substance: METOPROLOL
     Indication: HYPERTENSION
  4. PREVACID EC [Concomitant]
  5. RISPERDAL [Concomitant]
     Active Substance: RISPERIDONE
     Indication: SCHIZOAFFECTIVE DISORDER
  6. DIPHENHYDRAMINE. [Concomitant]
     Active Substance: DIPHENHYDRAMINE
     Indication: HYPERSENSITIVITY
  7. FISH OIL [Concomitant]
     Active Substance: FISH OIL
  8. MELATONIN [Concomitant]
     Active Substance: MELATONIN
     Indication: INSOMNIA
  9. VITRON C [Concomitant]
     Active Substance: ASCORBIC ACID\IRON
     Dosage: 125/66 MG
  10. COZAAR [Concomitant]
     Active Substance: LOSARTAN POTASSIUM
     Indication: HYPERTENSION
  11. METFORMIN [Concomitant]
     Active Substance: METFORMIN HYDROCHLORIDE
     Indication: TYPE 2 DIABETES MELLITUS
  12. SINGULAIR [Concomitant]
     Active Substance: MONTELUKAST SODIUM
  13. INGREZZA [Suspect]
     Active Substance: VALBENAZINE
     Route: 048
     Dates: start: 2017
  14. ALLEGRA D-XR [Concomitant]
     Indication: HYPERSENSITIVITY
  15. AMLODIPINE [Concomitant]
     Active Substance: AMLODIPINE BESYLATE
     Indication: HYPERTENSION
  16. ZOLPIDEM [Concomitant]
     Active Substance: ZOLPIDEM\ZOLPIDEM TARTRATE
     Indication: INSOMNIA
     Dosage: AT BEDTIME
  17. INGREZZA [Suspect]
     Active Substance: VALBENAZINE
     Dosage: IN THE MORNING
     Route: 048
     Dates: start: 20170803, end: 2017
  18. ADVAIR HFA [Concomitant]
     Active Substance: FLUTICASONE PROPIONATE\SALMETEROL XINAFOATE
     Indication: ASTHMA
     Dosage: 100/50 MCG
  19. ALBUTEROL. [Concomitant]
     Active Substance: ALBUTEROL
     Indication: ASTHMA
     Dosage: 90/18 MCG PUFF
  20. BENZTROPINE [Concomitant]
     Active Substance: BENZTROPINE
     Indication: SCHIZOAFFECTIVE DISORDER
  21. BIOTIN [Concomitant]
     Active Substance: BIOTIN
     Indication: SCHIZOAFFECTIVE DISORDER
  22. MIRAPEX [Concomitant]
     Active Substance: PRAMIPEXOLE DIHYDROCHLORIDE
  23. VOLTAREN [Concomitant]
     Active Substance: DICLOFENAC SODIUM
  24. INGREZZA [Suspect]
     Active Substance: VALBENAZINE
     Indication: TARDIVE DYSKINESIA
     Route: 048
     Dates: start: 20170710, end: 20170802
  25. PREVIDENT 5000 SENSITIVE TOOTHPASTE [Concomitant]

REACTIONS (7)
  - Anger [Not Recovered/Not Resolved]
  - Drug effect incomplete [Not Recovered/Not Resolved]
  - Dizziness postural [Not Recovered/Not Resolved]
  - Akathisia [Not Recovered/Not Resolved]
  - Tremor [Not Recovered/Not Resolved]
  - Irritability [Not Recovered/Not Resolved]
  - Somnolence [Unknown]

NARRATIVE: CASE EVENT DATE: 2017
